FAERS Safety Report 7329936-9 (Version None)
Quarter: 2011Q1

REPORT INFORMATION
  Report Type: 
  Country: None (occurrence: None)
  Receive Date: 20110303
  Receipt Date: 20110216
  Transmission Date: 20110831
  Serious: Yes (Death, Other)
  Sender: FDA-Public Use
  Company Number: US-CELGENEUS-163-21880-10091144

PATIENT
  Sex: Male
  Weight: 88 kg

DRUGS (27)
  1. FLUCONAZOLE [Concomitant]
     Route: 065
  2. ACETAMINOPHEN [Concomitant]
     Dosage: 650 MILLIGRAM
     Route: 065
  3. BACITRACIN/POLYMIXIN B [Concomitant]
     Route: 061
  4. DIPHENHYDRAMINE [Concomitant]
     Dosage: 25 MILLIGRAM
     Route: 065
  5. POLYVINYL [Concomitant]
     Dosage: 2 DROPS
     Route: 065
  6. CEFEPIME [Concomitant]
     Route: 065
  7. CAMPHOR/MENTHOL [Concomitant]
     Route: 065
  8. DOCUSATE SODIUM [Concomitant]
     Dosage: 100 MILLIGRAM
     Route: 048
  9. AMOXICILLIN AND CLAVULANATE POTASSIUM [Concomitant]
     Dosage: 875 MILLIGRAM
     Route: 065
  10. NORMAL SALINE [Concomitant]
     Dosage: 1000 MILLILITER
     Route: 065
  11. PREGABALIN [Concomitant]
     Dosage: 75 MILLIGRAM
     Route: 065
  12. CIPROFLOXACIN [Concomitant]
     Dosage: 500 MILLIGRAM
     Route: 065
  13. VALACYCLOVIR [Concomitant]
     Dosage: 500 MILLIGRAM
     Route: 065
  14. LORATADINE [Concomitant]
     Dosage: 10 MILLIGRAM
     Route: 065
  15. POLYETHYLENE GLYCOL [Concomitant]
     Dosage: 17 GRAM
     Route: 065
  16. MINERAL OIL/PETROLATUM WHITE [Concomitant]
     Route: 065
  17. SALINE [Concomitant]
     Route: 045
  18. OXYCODONE [Concomitant]
     Dosage: 10 MILLIGRAM
     Route: 065
  19. LOPERAMIDE [Concomitant]
     Dosage: 2 MILLIGRAM
     Route: 065
  20. PRAMOXINE-ZINC OXIDE [Concomitant]
     Route: 054
  21. PROCHLORPERAZINE [Concomitant]
     Dosage: 10 MILLIGRAM
     Route: 065
  22. AZACITIDINE [Suspect]
     Dosage: 25 MILLIGRAM/SQ. METER
     Route: 051
     Dates: start: 20100802, end: 20100806
  23. URSODIOL [Concomitant]
     Route: 065
  24. ACETAMINOPHEN [Concomitant]
     Dosage: 650 MILLIGRAM
     Route: 065
  25. REVLIMID [Suspect]
     Dosage: 50 MILLIGRAM
     Route: 048
     Dates: start: 20100802, end: 20100813
  26. MAALOX/DIPHENHYDRAMINE/VISCOUS [Concomitant]
     Dosage: 15 MILLILITER
     Route: 065
  27. ONDANSETRON [Concomitant]
     Dosage: 4 MILLIGRAM
     Route: 065

REACTIONS (2)
  - ACUTE MYELOID LEUKAEMIA [None]
  - SOMNOLENCE [None]
